FAERS Safety Report 5932930-3 (Version None)
Quarter: 2008Q4

REPORT INFORMATION
  Report Type: 
  Country: None (occurrence: None)
  Receive Date: 20081028
  Receipt Date: 20081021
  Transmission Date: 20090506
  Serious: Yes (Hospitalization, Disabling)
  Sender: FDA-Public Use
  Company Number: JP-MERCK-0809USA02835

PATIENT
  Age: 82 Year
  Sex: Male

DRUGS (6)
  1. SINGULAIR [Suspect]
     Indication: ASTHMA
     Route: 048
     Dates: start: 20080806, end: 20080903
  2. RABEPRAZOLE SODIUM [Suspect]
     Indication: GASTRITIS PROPHYLAXIS
     Route: 048
     Dates: start: 20080806, end: 20080904
  3. FLUTIDE [Concomitant]
     Dates: start: 20080806, end: 20080904
  4. SEREVENT [Concomitant]
     Dates: start: 20080729, end: 20080904
  5. MEPTIN [Concomitant]
     Dates: start: 20080729, end: 20080904
  6. NORVASC [Concomitant]
     Route: 048
     Dates: start: 20080808, end: 20080903

REACTIONS (1)
  - HEPATITIS ACUTE [None]
